FAERS Safety Report 7518552-1 (Version None)
Quarter: 2011Q2

REPORT INFORMATION
  Report Type: 
  Country: None (occurrence: None)
  Receive Date: 20110601
  Receipt Date: 20110601
  Transmission Date: 20111010
  Serious: Yes (Disabling, Other)
  Sender: FDA-Public Use
  Company Number: None

PATIENT
  Age: 33 Year
  Sex: Male
  Weight: 111.1313 kg

DRUGS (1)
  1. ZYCLARA [Suspect]
     Indication: ANOGENITAL WARTS
     Dosage: .25 G 1 QD TOP
     Route: 061
     Dates: start: 20110512, end: 20110516

REACTIONS (5)
  - BLISTER [None]
  - BURNS THIRD DEGREE [None]
  - SCROTAL DISORDER [None]
  - SCROTAL INFECTION [None]
  - BURNS SECOND DEGREE [None]
